FAERS Safety Report 12704879 (Version 1)
Quarter: 2016Q3

REPORT INFORMATION
  Report Type: Spontaneous
  Country: US (occurrence: KR)
  Receive Date: 20160831
  Receipt Date: 20160831
  Transmission Date: 20161109
  Serious: Yes (Death, Life-Threatening, Hospitalization, Other)
  Sender: FDA-Public Use
  Company Number: US-SA-2016SA161126

PATIENT
  Age: 37 Year
  Sex: Male
  Weight: 73.1 kg

DRUGS (2)
  1. ELOXATIN [Suspect]
     Active Substance: OXALIPLATIN
     Indication: ADENOCARCINOMA GASTRIC
     Route: 042
     Dates: start: 20151104, end: 20160426
  2. ELOXATIN [Suspect]
     Active Substance: OXALIPLATIN
     Indication: ADENOCARCINOMA GASTRIC
     Route: 048
     Dates: start: 20151104, end: 20160426

REACTIONS (5)
  - Drug ineffective [Unknown]
  - Abdominal pain [Fatal]
  - Gastric perforation [Fatal]
  - Multiple organ dysfunction syndrome [Fatal]
  - Disease progression [Unknown]

NARRATIVE: CASE EVENT DATE: 20160719
